FAERS Safety Report 8908871 (Version 6)
Quarter: 2016Q3

REPORT INFORMATION
  Report Type: Spontaneous
  Country: US (occurrence: US)
  Receive Date: 20121114
  Receipt Date: 20160913
  Transmission Date: 20161109
  Serious: Yes (Hospitalization, Disabling, Other)
  Sender: FDA-Public Use
  Company Number: US-009507513-1211USA002775

PATIENT
  Sex: Female
  Weight: 60.32 kg

DRUGS (10)
  1. FOSAMAX [Suspect]
     Active Substance: ALENDRONATE SODIUM
     Indication: OSTEOPOROSIS
     Dosage: 70 MG, QW
     Route: 048
     Dates: start: 20030820, end: 20031202
  2. FOSAMAX [Suspect]
     Active Substance: ALENDRONATE SODIUM
     Dosage: 70 MG, QW
     Route: 048
     Dates: end: 200606
  3. VITAMIN A [Concomitant]
     Active Substance: VITAMIN A
     Indication: PRODUCT USED FOR UNKNOWN INDICATION
     Dosage: UNK UNK, UNKNOWN
     Route: 065
     Dates: start: 20030908, end: 2006
  4. CALCIUM (UNSPECIFIED) [Concomitant]
     Active Substance: CALCIUM
     Indication: PRODUCT USED FOR UNKNOWN INDICATION
     Dosage: 1500 DF, UNKNOWN
     Route: 065
     Dates: start: 20030908, end: 2006
  5. CALCIUM (UNSPECIFIED) [Concomitant]
     Active Substance: CALCIUM
     Dosage: 1800 MG, QD
     Dates: start: 20061006
  6. PREMPRO [Concomitant]
     Active Substance: ESTROGENS, CONJUGATED\MEDROXYPROGESTERONE ACETATE
     Indication: HORMONE THERAPY
     Dosage: 0.625 MG, QD
     Route: 065
     Dates: start: 1998
  7. VITAMIN D [Concomitant]
     Active Substance: CHOLECALCIFEROL
     Indication: PRODUCT USED FOR UNKNOWN INDICATION
     Dosage: 600-800 IU, UNK
     Route: 065
     Dates: start: 20030908, end: 2006
  8. VITAMIN E [Concomitant]
     Active Substance: .ALPHA.-TOCOPHEROL
     Indication: PRODUCT USED FOR UNKNOWN INDICATION
     Dosage: UNK, UNKNOWN
     Route: 065
     Dates: start: 20030908, end: 2006
  9. FOSAMAX [Suspect]
     Active Substance: ALENDRONATE SODIUM
     Dosage: 35 MG, QW
     Dates: start: 20041209, end: 20060501
  10. PRILOSEC [Concomitant]
     Active Substance: OMEPRAZOLE MAGNESIUM
     Indication: PRODUCT USED FOR UNKNOWN INDICATION
     Dosage: 20 MG, QD
     Route: 065
     Dates: start: 20030908, end: 200606

REACTIONS (38)
  - Low turnover osteopathy [Unknown]
  - Ankle fracture [Unknown]
  - Lower limb fracture [Unknown]
  - Surgery [Not Recovered/Not Resolved]
  - Raynaud^s phenomenon [Unknown]
  - Osteoarthritis [Unknown]
  - Hip fracture [Unknown]
  - Fractured ischium [Recovered/Resolved]
  - Lower limb fracture [Unknown]
  - Mobility decreased [Unknown]
  - Depression [Unknown]
  - Femur fracture [Unknown]
  - Hyperlipidaemia [Unknown]
  - Gastrooesophageal reflux disease [Unknown]
  - Femur fracture [Not Recovered/Not Resolved]
  - Acetabulum fracture [Unknown]
  - Vitamin D deficiency [Unknown]
  - Calcium deficiency [Unknown]
  - Blood cholesterol increased [Unknown]
  - Nausea [Unknown]
  - Drug ineffective [Unknown]
  - Periodontal disease [Unknown]
  - Nasal septum deviation [Unknown]
  - Bone disorder [Unknown]
  - Periodontal operation [Unknown]
  - Urinary incontinence [Unknown]
  - Bone metabolism disorder [Unknown]
  - Stress fracture [Unknown]
  - Barrett^s oesophagus [Unknown]
  - Pubis fracture [Unknown]
  - Osteoarthritis [Unknown]
  - Blood urea increased [Unknown]
  - Tibia fracture [Unknown]
  - Osteoporosis [Unknown]
  - Impaired healing [Unknown]
  - Herpes zoster [Unknown]
  - Rib fracture [Unknown]
  - Hip fracture [Unknown]

NARRATIVE: CASE EVENT DATE: 200309
